FAERS Safety Report 24228909 (Version 2)
Quarter: 2024Q4

REPORT INFORMATION
  Report Type: Spontaneous
  Country: US (occurrence: US)
  Receive Date: 20240820
  Receipt Date: 20241017
  Transmission Date: 20250115
  Serious: Yes (Hospitalization, Other)
  Sender: JOHNSON AND JOHNSON
  Company Number: US-JNJFOC-20240830421

PATIENT
  Age: 42 Year
  Sex: Male

DRUGS (11)
  1. INVEGA SUSTENNA [Suspect]
     Active Substance: PALIPERIDONE PALMITATE
     Indication: Product used for unknown indication
     Route: 030
     Dates: start: 20240807
  2. INVEGA SUSTENNA [Suspect]
     Active Substance: PALIPERIDONE PALMITATE
     Dosage: 2
     Route: 030
     Dates: start: 20240816
  3. INVEGA SUSTENNA [Suspect]
     Active Substance: PALIPERIDONE PALMITATE
  4. THORAZINE [Concomitant]
     Active Substance: CHLORPROMAZINE
  5. VIAGRA [Concomitant]
     Active Substance: SILDENAFIL CITRATE
  6. SEROQUEL [Concomitant]
     Active Substance: QUETIAPINE FUMARATE
  7. COGENTIN [Concomitant]
     Active Substance: BENZTROPINE MESYLATE
  8. RISPERDAL [Concomitant]
     Active Substance: RISPERIDONE
  9. GEODON [Concomitant]
     Active Substance: ZIPRASIDONE HYDROCHLORIDE\ZIPRASIDONE MESYLATE
  10. DEPAKOTE [Concomitant]
     Active Substance: DIVALPROEX SODIUM
  11. BENADRYL [Concomitant]
     Active Substance: DIPHENHYDRAMINE HYDROCHLORIDE

REACTIONS (9)
  - Hallucination, auditory [Unknown]
  - Dementia [Unknown]
  - Schizophrenia [Unknown]
  - Near death experience [Unknown]
  - Migraine [Unknown]
  - Emotional distress [Unknown]
  - Libido decreased [Unknown]
  - Headache [Unknown]
  - Rash [Unknown]

NARRATIVE: CASE EVENT DATE: 20240801
